FAERS Safety Report 10955233 (Version 1)
Quarter: 2015Q1

REPORT INFORMATION
  Report Type: Spontaneous
  Country: US (occurrence: US)
  Receive Date: 20150326
  Receipt Date: 20150326
  Transmission Date: 20150721
  Serious: No
  Sender: FDA-Public Use
  Company Number: US-009507513-1503USA012492

PATIENT

DRUGS (1)
  1. ZONTIVITY [Suspect]
     Active Substance: VORAPAXAR SULFATE
     Dosage: UNK
     Route: 048
     Dates: start: 201503

REACTIONS (1)
  - Headache [Unknown]

NARRATIVE: CASE EVENT DATE: 201503
